FAERS Safety Report 8024738-2 (Version None)
Quarter: 2012Q1

REPORT INFORMATION
  Report Type: 
  Country: None (occurrence: None)
  Receive Date: 20120103
  Receipt Date: 20111219
  Transmission Date: 20120608
  Serious: Yes (Other)
  Sender: FDA-Public Use
  Company Number: 2011MA017905

PATIENT
  Age: 49 Year
  Sex: Female

DRUGS (4)
  1. TOLTERODINE TARTRATE [Suspect]
     Indication: BLADDER IRRITATION
     Dosage: 4 MG;QD;PO
     Route: 048
     Dates: start: 20111018, end: 20111019
  2. CLARITHROMYCIN [Suspect]
     Indication: LOWER RESPIRATORY TRACT INFECTION
  3. AMOXICILLIN [Concomitant]
  4. FLUOXETINE [Suspect]
     Indication: ANXIETY
     Dates: start: 20110901

REACTIONS (4)
  - POLLAKIURIA [None]
  - CONVULSIVE THRESHOLD LOWERED [None]
  - ROAD TRAFFIC ACCIDENT [None]
  - CONVULSION [None]
